FAERS Safety Report 21495009 (Version 4)
Quarter: 2024Q4

REPORT INFORMATION
  Report Type: Report from Study
  Country: US (occurrence: US)
  Receive Date: 20221022
  Receipt Date: 20241016
  Transmission Date: 20250115
  Serious: Yes (Disabling, Other)
  Sender: NOVARTIS
  Company Number: US-NOVARTISTESTPH-NVSC2022US237770

PATIENT
  Age: 48 Year
  Sex: Female

DRUGS (7)
  1. GILENYA [Suspect]
     Active Substance: FINGOLIMOD HYDROCHLORIDE
     Indication: Relapsing-remitting multiple sclerosis
     Dosage: 0.5 MG, QD
     Route: 048
     Dates: start: 20141212
  2. GILENYA [Suspect]
     Active Substance: FINGOLIMOD HYDROCHLORIDE
     Dosage: 0.5 MG, QD
     Route: 048
  3. CLARITIN [Concomitant]
     Active Substance: LORATADINE
     Indication: Product used for unknown indication
     Dosage: UNK
     Route: 065
  4. EXCEDRIN [Concomitant]
     Active Substance: ACETAMINOPHEN\ASPIRIN\CAFFEINE
     Indication: Migraine
     Dosage: TAKKE 1 PILL BY MOUTH
     Route: 048
  5. IBUPROFEN [Concomitant]
     Active Substance: IBUPROFEN
     Indication: Product used for unknown indication
     Dosage: 600 MG
     Route: 048
  6. IMITREX [Concomitant]
     Active Substance: SUMATRIPTAN SUCCINATE
     Indication: Product used for unknown indication
     Dosage: 100 MG, TALE 1 PILL BY MOUTH
     Route: 048
  7. PAMELOR [Concomitant]
     Active Substance: NORTRIPTYLINE HYDROCHLORIDE
     Indication: Product used for unknown indication
     Dosage: TAKE 1 PILL10 MG, QD FOR 90 DAYS
     Route: 048

REACTIONS (28)
  - Seizure [Unknown]
  - Myelitis transverse [Unknown]
  - Balance disorder [Unknown]
  - Ataxia [Unknown]
  - Dysgraphia [Unknown]
  - Muscular weakness [Not Recovered/Not Resolved]
  - Headache [Unknown]
  - Hypoaesthesia [Unknown]
  - Dizziness [Unknown]
  - Gait disturbance [Unknown]
  - Speech disorder [Unknown]
  - Vision blurred [Unknown]
  - Anxiety [Unknown]
  - Amnesia [Unknown]
  - Depression [Unknown]
  - Stress [Unknown]
  - Arthralgia [Unknown]
  - Fatigue [Unknown]
  - Weight decreased [Unknown]
  - Insomnia [Unknown]
  - Myalgia [Unknown]
  - Decreased appetite [Unknown]
  - Asthma [Unknown]
  - Anaemia [Unknown]
  - Mood altered [Unknown]
  - Coordination abnormal [Unknown]
  - Anger [Unknown]
  - Tremor [Unknown]

NARRATIVE: CASE EVENT DATE: 20221019
